FAERS Safety Report 15458271 (Version 2)
Quarter: 2025Q3

REPORT INFORMATION
  Report Type: Report from Study
  Country: EU (occurrence: EU)
  Receive Date: 20181003
  Receipt Date: 20250707
  Transmission Date: 20251020
  Serious: Yes (Life-Threatening, Other)
  Sender: AUROBINDO
  Company Number: EU-AUROBINDO-AUR-APL-2018-048159

PATIENT
  Age: 27 Year
  Sex: Male

DRUGS (18)
  1. OLANZAPINE [Suspect]
     Active Substance: OLANZAPINE
     Indication: Chronic hepatitis C
     Route: 065
  2. OLANZAPINE [Suspect]
     Active Substance: OLANZAPINE
     Indication: Hepatitis C
     Route: 065
  3. OLANZAPINE [Suspect]
     Active Substance: OLANZAPINE
     Indication: HIV infection
  4. FLUCONAZOLE [Suspect]
     Active Substance: FLUCONAZOLE
     Indication: Chronic hepatitis C
     Route: 065
  5. FLUCONAZOLE [Suspect]
     Active Substance: FLUCONAZOLE
     Indication: Hepatitis C
  6. FLUCONAZOLE [Suspect]
     Active Substance: FLUCONAZOLE
     Indication: HIV infection
  7. LOPINAVIR\RITONAVIR [Suspect]
     Active Substance: LOPINAVIR\RITONAVIR
     Indication: Chronic hepatitis C
     Route: 065
  8. LOPINAVIR\RITONAVIR [Suspect]
     Active Substance: LOPINAVIR\RITONAVIR
     Indication: HIV infection
     Route: 065
  9. LOPINAVIR\RITONAVIR [Suspect]
     Active Substance: LOPINAVIR\RITONAVIR
     Indication: Hepatitis C
  10. STAVUDINE [Suspect]
     Active Substance: STAVUDINE
     Indication: Hepatitis C
     Route: 065
  11. STAVUDINE [Suspect]
     Active Substance: STAVUDINE
     Indication: HIV infection
  12. STAVUDINE [Suspect]
     Active Substance: STAVUDINE
     Indication: Chronic hepatitis C
  13. METHADONE HYDROCHLORIDE [Suspect]
     Active Substance: METHADONE HYDROCHLORIDE
     Indication: Hepatitis C
     Route: 065
  14. METHADONE HYDROCHLORIDE [Suspect]
     Active Substance: METHADONE HYDROCHLORIDE
     Indication: HIV infection
  15. METHADONE HYDROCHLORIDE [Suspect]
     Active Substance: METHADONE HYDROCHLORIDE
     Indication: Chronic hepatitis C
  16. DIDANOSINE [Suspect]
     Active Substance: DIDANOSINE
     Indication: Chronic hepatitis C
     Route: 065
  17. DIDANOSINE [Suspect]
     Active Substance: DIDANOSINE
     Indication: Hepatitis C
  18. DIDANOSINE [Suspect]
     Active Substance: DIDANOSINE
     Indication: HIV infection

REACTIONS (2)
  - Hepatic fibrosis [Unknown]
  - Drug-induced liver injury [Unknown]
